FAERS Safety Report 4285809-X (Version None)
Quarter: 2004Q1

REPORT INFORMATION
  Report Type: 
  Country: None (occurrence: None)
  Receive Date: 20040203
  Receipt Date: 20040122
  Transmission Date: 20041129
  Serious: Yes (Hospitalization, Disabling)
  Sender: FDA-Public Use
  Company Number: 002#28#2004-00015(0)

PATIENT
  Age: 84 Year
  Sex: Male

DRUGS (1)
  1. REGLAN [Suspect]
     Indication: GASTROINTESTINAL MOTILITY DISORDER
     Dosage: 10MG, 3 IN 1 D, ORAL
     Route: 048

REACTIONS (8)
  - ACTIVITIES OF DAILY LIVING IMPAIRED [None]
  - BRADYKINESIA [None]
  - COGWHEEL RIGIDITY [None]
  - CONFUSIONAL STATE [None]
  - DEPRESSIVE SYMPTOM [None]
  - DYSPHAGIA [None]
  - INCONTINENCE [None]
  - WEIGHT DECREASED [None]
